FAERS Safety Report 7295374-0 (Version None)
Quarter: 2011Q1

REPORT INFORMATION
  Report Type: 
  Country: None (occurrence: None)
  Receive Date: 20110216
  Receipt Date: 20110126
  Transmission Date: 20110831
  Serious: Yes (Hospitalization)
  Sender: FDA-Public Use
  Company Number: US-B.I. PHARMACEUTICALS,INC./RIDGEFIELD-2011-BP-01008PF

PATIENT
  Sex: Male

DRUGS (15)
  1. PATANASE [Concomitant]
     Dosage: 0.6%, 2 SPRAYS PER NOSTRIL TWICE DAILY
  2. ACETAMINOPHEN AND HYDROCODONE BITARTRATE [Concomitant]
     Dosage: 5-500; 1 TAB 3 TIMES DAILY
  3. FENOFIBERATE [Concomitant]
     Dosage: 134 MG
  4. PREDNISONE TAB [Suspect]
     Indication: EMPHYSEMA
     Dosage: 20-10MG + 4310MG
  5. SINGULAIR [Concomitant]
  6. FLUTICASONE PROPIONATE [Concomitant]
     Dosage: 0.6%, 2 SPRAYS PER NOSTRIL TWICE DAILY
  7. LIPITOR [Suspect]
     Dosage: 10 MG
     Route: 048
  8. ADVAIR DISKUS 100/50 [Concomitant]
     Dosage: 250/50MCG/DOSE, 1 PUFF TWICE DAILY PRN RINSE AND SPIT
  9. LOHIST-12 [Concomitant]
     Dosage: 1 TWICE EACH DAY
  10. PREDNISONE TAB [Suspect]
     Indication: BRONCHITIS
  11. NON-BI DRUG [Suspect]
  12. MS CONTIN [Concomitant]
     Dosage: 90 MG
  13. ZANTAC [Concomitant]
     Dosage: 300 MG
  14. PROAIR HFA [Concomitant]
     Dosage: EMERGENCY ONLY
  15. ALPRAZOLAM [Concomitant]
     Dosage: 1.5 MG

REACTIONS (1)
  - ULCER [None]
